FAERS Safety Report 8125104-1 (Version None)
Quarter: 2012Q1

REPORT INFORMATION
  Report Type: 
  Country: None (occurrence: None)
  Receive Date: 20120130
  Receipt Date: 20120119
  Transmission Date: 20120608
  Serious: Yes (Other)
  Sender: FDA-Public Use
  Company Number: 2011028797

PATIENT
  Age: 60 Year
  Sex: Female
  Weight: 106.5953 kg

DRUGS (39)
  1. RESTASIS [Concomitant]
  2. GABAPENTIN [Concomitant]
  3. ADVAIR DISKUS 100/50 [Concomitant]
  4. AZITHROMYCIN [Concomitant]
  5. FOLIC ACID (FOLIC ACID) [Concomitant]
  6. HIZENTRA [Suspect]
     Indication: SELECTIVE IGM IMMUNODEFICIENCY
     Dosage: SEE IMAGE
     Route: 058
     Dates: start: 20110513
  7. HIZENTRA [Suspect]
     Indication: HYPOGAMMAGLOBULINAEMIA
     Dosage: SEE IMAGE
     Route: 058
     Dates: start: 20110513
  8. HIZENTRA [Suspect]
     Indication: SELECTIVE IGA IMMUNODEFICIENCY
     Dosage: SEE IMAGE
     Route: 058
     Dates: start: 20110513
  9. HIZENTRA [Suspect]
     Indication: IMMUNODEFICIENCY
     Dosage: SEE IMAGE
     Route: 058
     Dates: start: 20110513
  10. HIZENTRA [Suspect]
     Indication: IMMUNODEFICIENCY COMMON VARIABLE
     Dosage: SEE IMAGE
     Route: 058
     Dates: start: 20110513
  11. HIZENTRA [Suspect]
     Indication: SELECTIVE IGM IMMUNODEFICIENCY
     Dosage: SEE IMAGE
     Route: 058
     Dates: start: 20111201
  12. HIZENTRA [Suspect]
     Indication: HYPOGAMMAGLOBULINAEMIA
     Dosage: SEE IMAGE
     Route: 058
     Dates: start: 20111201
  13. HIZENTRA [Suspect]
     Indication: SELECTIVE IGA IMMUNODEFICIENCY
     Dosage: SEE IMAGE
     Route: 058
     Dates: start: 20111201
  14. HIZENTRA [Suspect]
     Indication: IMMUNODEFICIENCY
     Dosage: SEE IMAGE
     Route: 058
     Dates: start: 20111201
  15. HIZENTRA [Suspect]
     Indication: IMMUNODEFICIENCY COMMON VARIABLE
     Dosage: SEE IMAGE
     Route: 058
     Dates: start: 20111201
  16. HIZENTRA [Suspect]
     Indication: SELECTIVE IGM IMMUNODEFICIENCY
     Dosage: SEE IMAGE
     Route: 058
     Dates: start: 20110928
  17. HIZENTRA [Suspect]
     Indication: HYPOGAMMAGLOBULINAEMIA
     Dosage: SEE IMAGE
     Route: 058
     Dates: start: 20110928
  18. HIZENTRA [Suspect]
     Indication: SELECTIVE IGA IMMUNODEFICIENCY
     Dosage: SEE IMAGE
     Route: 058
     Dates: start: 20110928
  19. HIZENTRA [Suspect]
     Indication: IMMUNODEFICIENCY
     Dosage: SEE IMAGE
     Route: 058
     Dates: start: 20110928
  20. HIZENTRA [Suspect]
     Indication: IMMUNODEFICIENCY COMMON VARIABLE
     Dosage: SEE IMAGE
     Route: 058
     Dates: start: 20110928
  21. LASIX [Concomitant]
  22. ATENOLOL [Concomitant]
  23. CLARITIN [Concomitant]
  24. HIZENTRA [Suspect]
  25. HIZENTRA [Suspect]
  26. TRAMADOL HCL [Concomitant]
  27. ISOSORBIDE (ISOSORBIDE) [Concomitant]
  28. ESTRADIOL [Concomitant]
  29. DUONEB (COMBIVENT /01261001/) [Concomitant]
  30. SYNTHROID [Concomitant]
  31. NORTRIPTYLINE HCL [Concomitant]
  32. PRAVASTATIN [Concomitant]
  33. CLOBETASOL (CLOBETASOL) [Concomitant]
  34. METHOTREXATE (METHOTREXATE) [Concomitant]
  35. HIZENTRA [Suspect]
  36. SORIATANE [Concomitant]
  37. AMARYL [Concomitant]
  38. FLONASE [Concomitant]
  39. PREDNISONE TAPER (PREDNISONE) [Concomitant]

REACTIONS (6)
  - UPPER RESPIRATORY TRACT INFECTION [None]
  - INFUSION SITE ERYTHEMA [None]
  - SINUSITIS [None]
  - VOMITING [None]
  - INFUSION SITE PAIN [None]
  - NAUSEA [None]
